FAERS Safety Report 8299826-6 (Version None)
Quarter: 2012Q2

REPORT INFORMATION
  Report Type: 
  Country: None (occurrence: None)
  Receive Date: 20120419
  Receipt Date: 20120412
  Transmission Date: 20120825
  Serious: Yes (Other)
  Sender: FDA-Public Use
  Company Number: US-RB-039298-12

PATIENT
  Sex: Female

DRUGS (2)
  1. SUBOXONE [Suspect]
     Indication: DRUG DEPENDENCE
     Route: 060
     Dates: start: 20101201
  2. SYNTHROID [Concomitant]

REACTIONS (3)
  - AUTOIMMUNE THYROIDITIS [None]
  - ATTENTION DEFICIT/HYPERACTIVITY DISORDER [None]
  - CONDITION AGGRAVATED [None]
